FAERS Safety Report 8217210-8 (Version None)
Quarter: 2012Q1

REPORT INFORMATION
  Report Type: 
  Country: None (occurrence: None)
  Receive Date: 20120313
  Receipt Date: 20120228
  Transmission Date: 20120608
  Serious: Yes (Life-Threatening, Hospitalization)
  Sender: FDA-Public Use
  Company Number: FR-005507

PATIENT
  Age: 56 Year
  Sex: Male

DRUGS (11)
  1. FENOFIBRATE [Suspect]
     Indication: HYPERTRIGLYCERIDAEMIA
     Dosage: 200 MG, BEFORE 2006, ORAL
     Route: 048
     Dates: start: 20060101
  2. DIAMICRON (GLICLAZIDE) TABLET 30 MG [Suspect]
     Indication: TYPE 2 DIABETES MELLITUS
     Dosage: 30 MG, BEFORE 2006, ORAL
     Route: 048
     Dates: start: 20060101
  3. ALLOPURINOL [Suspect]
     Indication: HYPERURICAEMIA
     Dosage: 300 MG, BEFORE 2006, ORAL
     Route: 048
     Dates: start: 20060101
  4. JANUVIA [Suspect]
     Indication: TYPE 2 DIABETES MELLITUS
     Dosage: 100 MG, ORAL
     Route: 048
     Dates: start: 20091001
  5. ACTOS [Suspect]
     Indication: TYPE 2 DIABETES MELLITUS
     Dosage: 30 MG, ORAL
     Route: 048
     Dates: start: 20060301, end: 20100201
  6. PERINDOPRIL ERBUMINE [Suspect]
     Indication: CONGESTIVE CARDIOMYOPATHY
     Dosage: 2.5 MG, ORAL
     Route: 048
     Dates: start: 20091201
  7. ASPIRIN [Suspect]
     Indication: CONGESTIVE CARDIOMYOPATHY
     Dosage: 75 MG, ORAL
     Route: 048
     Dates: start: 20091201
  8. BISOPROLOL FUMARATE [Suspect]
     Indication: CONGESTIVE CARDIOMYOPATHY
     Dosage: 2.5 MG, ORAL
     Route: 048
     Dates: start: 20091201
  9. DESMOPRESSIN ACETATE [Suspect]
     Indication: DIABETES INSIPIDUS
     Dosage: 300 UG, ORAL
     Route: 048
     Dates: start: 19950101
  10. PRAZOSIN HCL [Suspect]
     Indication: HYPERTENSION
     Dosage: ORAL
     Route: 048
     Dates: start: 20060101, end: 20100201
  11. KAYEXALATE [Suspect]
     Indication: HYPERKALAEMIA
     Dosage: ORAL
     Route: 048
     Dates: start: 20100501

REACTIONS (4)
  - BLADDER TRANSITIONAL CELL CARCINOMA STAGE II [None]
  - INFECTIOUS PERITONITIS [None]
  - CONDITION AGGRAVATED [None]
  - CARDIOMYOPATHY [None]
